FAERS Safety Report 22657276 (Version 1)
Quarter: 2023Q2

REPORT INFORMATION
  Report Type: Spontaneous
  Country: FR (occurrence: FR)
  Receive Date: 20230630
  Receipt Date: 20230630
  Transmission Date: 20230721
  Serious: Yes (Other)
  Sender: FDA-Public Use
  Company Number: FR-002147023-NVSC2023FR148157

PATIENT
  Age: 83 Year
  Sex: Female

DRUGS (1)
  1. TEGRETOL [Suspect]
     Active Substance: CARBAMAZEPINE
     Indication: Oral pain
     Dosage: 0.25 DOSAGE FORM, BID (QUARTER TABLET OF 200 MG) (30 COMP)
     Route: 065
     Dates: start: 20230614, end: 20230624

REACTIONS (7)
  - Angina pectoris [Unknown]
  - Balance disorder [Unknown]
  - Nausea [Unknown]
  - Dry mouth [Unknown]
  - Insomnia [Unknown]
  - Off label use [Unknown]
  - Product use in unapproved indication [Unknown]

NARRATIVE: CASE EVENT DATE: 20230614
